FAERS Safety Report 21209260 (Version 1)
Quarter: 2022Q3

REPORT INFORMATION
  Report Type: Spontaneous
  Country: CZ (occurrence: CZ)
  Receive Date: 20220813
  Receipt Date: 20220813
  Transmission Date: 20221027
  Serious: Yes (Other)
  Sender: FDA-Public Use
  Company Number: CZ-NOVARTISPH-NVSC2022CZ179753

PATIENT
  Age: 69 Year
  Sex: Male

DRUGS (5)
  1. OLANZAPINE [Suspect]
     Active Substance: OLANZAPINE
     Indication: Manic symptom
     Dosage: 5 MG, QD (5-10 MG/D)
     Route: 065
     Dates: start: 202008, end: 2020
  2. OLANZAPINE [Suspect]
     Active Substance: OLANZAPINE
     Indication: Bipolar disorder
     Dosage: 10 MG, QD (5-10 MG/D)
     Route: 065
     Dates: start: 202008, end: 2020
  3. LITHIUM [Concomitant]
     Active Substance: LITHIUM
     Indication: Bipolar disorder
     Dosage: UNK (HE HAS BEEN USING LITHIUM SINCE 1976)
     Route: 065
     Dates: start: 1976
  4. LITHIUM [Concomitant]
     Active Substance: LITHIUM
     Dosage: 1050-1200MG, DAILY (HE HAS BEEN TAKING LITHIUM AT 1,050?1,200 MG A DAY FOR YEARS, BUT VARIABLY
     Route: 065
     Dates: start: 202008
  5. LITHIUM [Concomitant]
     Active Substance: LITHIUM
     Dosage: 1350 MG, QD
     Route: 065
     Dates: start: 202008

REACTIONS (2)
  - Stupor [Recovered/Resolved]
  - Sedation [Recovered/Resolved]

NARRATIVE: CASE EVENT DATE: 20200801
